FAERS Safety Report 4871300-6 (Version None)
Quarter: 2005Q4

REPORT INFORMATION
  Report Type: 
  Country: None (occurrence: None)
  Receive Date: 20051229
  Receipt Date: 20051222
  Transmission Date: 20060501
  Serious: Yes (Other)
  Sender: FDA-Public Use
  Company Number: 006302

PATIENT
  Age: 30 Year
  Sex: Female

DRUGS (2)
  1. CLARAVIS [Suspect]
     Dates: start: 20040915, end: 20050123
  2. CLARAVIS [Suspect]
     Dates: start: 20030804, end: 20051205

REACTIONS (3)
  - ABORTION SPONTANEOUS [None]
  - DRUG EXPOSURE DURING PREGNANCY [None]
  - UNINTENDED PREGNANCY [None]
